FAERS Safety Report 8663027 (Version 3)
Quarter: 2013Q2

REPORT INFORMATION
  Report Type: Report from Study
  Country: CA (occurrence: CA)
  Receive Date: 20120712
  Receipt Date: 20130424
  Transmission Date: 20140414
  Serious: Yes (Death, Disabling, Other)
  Sender: FDA-Public Use
  Company Number: PHHY2012CA059120

PATIENT
  Age: 72 Year
  Sex: Female

DRUGS (2)
  1. EXELON PATCH [Suspect]
     Indication: DEMENTIA ALZHEIMER^S TYPE
     Route: 062
  2. ARICEPT [Suspect]

REACTIONS (5)
  - Death [Fatal]
  - Autonomic nervous system imbalance [Unknown]
  - Pneumonia [Unknown]
  - Incontinence [Unknown]
  - Disorientation [Unknown]
